FAERS Safety Report 18685812 (Version 1)
Quarter: 2020Q4

REPORT INFORMATION
  Report Type: Spontaneous
  Country: US (occurrence: US)
  Receive Date: 20201230
  Receipt Date: 20201230
  Transmission Date: 20210114
  Serious: No
  Sender: FDA-Public Use
  Company Number: US-BAYER-2020-285263

PATIENT
  Age: 81 Year
  Sex: Male

DRUGS (2)
  1. MIRALAX [Suspect]
     Active Substance: POLYETHYLENE GLYCOL 3350
     Indication: CONSTIPATION
     Dosage: UNK UNK, TID
     Dates: start: 202012
  2. SENEXON-S [Concomitant]
     Active Substance: DOCUSATE SODIUM\SENNOSIDES A AND B
     Dosage: UNK

REACTIONS (1)
  - Therapeutic product effect incomplete [Unknown]
